FAERS Safety Report 6930012-5 (Version None)
Quarter: 2010Q3

REPORT INFORMATION
  Report Type: 
  Country: None (occurrence: None)
  Receive Date: 20100818
  Receipt Date: 20100805
  Transmission Date: 20110219
  Serious: Yes (Other)
  Sender: FDA-Public Use
  Company Number: FI-ELI_LILLY_AND_COMPANY-FI201005005274

PATIENT
  Sex: Female

DRUGS (6)
  1. CYMBALTA [Suspect]
     Indication: DEPRESSION
     Dosage: 1 D/F, UNK
  2. CYMBALTA [Suspect]
     Dosage: 60 MG, DAILY (1/D)
     Route: 048
  3. CYMBALTA [Suspect]
     Dosage: 30 MG, DAILY (1/D)
     Route: 048
     Dates: start: 20090306
  4. CYMBALTA [Suspect]
     Dosage: 30 MG, QOD
     Dates: end: 20100615
  5. PULMICORT [Concomitant]
     Indication: ASTHMA
     Dosage: 200 UG, 2/D
     Route: 055
  6. CALCICHEW-D3 FORTE [Concomitant]
     Indication: SUPPLEMENTATION THERAPY
     Dosage: 500 MG CALCIUM, 10 UG VITAMIN D3, DAILY (1/D)
     Route: 065
     Dates: start: 20100101

REACTIONS (8)
  - ANGER [None]
  - ANORGASMIA [None]
  - BREAST CANCER [None]
  - DRUG WITHDRAWAL SYNDROME [None]
  - INSOMNIA [None]
  - IRRITABILITY [None]
  - RECTAL HAEMORRHAGE [None]
  - TINNITUS [None]
